FAERS Safety Report 8672968 (Version 4)
Quarter: 2012Q4

REPORT INFORMATION
  Report Type: Report from Study
  Country: FR (occurrence: FR)
  Receive Date: 20120719
  Receipt Date: 20120920
  Transmission Date: 20130627
  Serious: Yes (Hospitalization)
  Sender: FDA-Public Use
  Company Number: FR-ROCHE-1084720

PATIENT
  Age: 64 Year
  Sex: Male
  Weight: 102 kg

DRUGS (22)
  1. RITUXIMAB [Suspect]
     Indication: B-CELL LYMPHOMA
     Dosage: date of last dose prior to SAE 18/jun/2012
     Route: 042
     Dates: start: 20120321
  2. RITUXIMAB [Suspect]
     Dosage: last dose 18/jun/2012
     Route: 058
     Dates: start: 20120420
  3. RITUXIMAB [Suspect]
     Dosage: last dose prior to SAE  18 Jun 2012.
     Route: 058
     Dates: start: 20120618, end: 20120713
  4. RITUXIMAB [Suspect]
     Dosage: last dose prior to SAE  18 Jun 2012.
     Route: 058
     Dates: start: 20120518
  5. BENDAMUSTINE [Suspect]
     Indication: B-CELL LYMPHOMA
     Dosage: date of last dose prior to SAE 23/MAr/2012
     Route: 042
     Dates: start: 20120322
  6. BENDAMUSTINE [Suspect]
     Dosage: last dose: 19 June 2012
     Route: 042
     Dates: start: 20120618, end: 20120713
  7. ESCITALOPRAM OXALATE [Concomitant]
     Indication: PRODUCT USED FOR UNKNOWN INDICATION
  8. FUROSEMIDE [Concomitant]
     Indication: PRODUCT USED FOR UNKNOWN INDICATION
  9. ACEBUTOLOL [Concomitant]
     Indication: HYPERTENSION
     Route: 065
     Dates: start: 19990101
  10. ARIXTRA [Concomitant]
     Indication: THROMBOSIS
     Route: 065
     Dates: start: 20120326
  11. ARIXTRA [Concomitant]
     Indication: PULMONARY EMBOLISM
  12. SOLU-MEDROL [Concomitant]
     Indication: BRONCHOSPASM
     Route: 065
     Dates: start: 20120321, end: 20120321
  13. COAPROVEL [Concomitant]
     Indication: HYPERTENSION
     Route: 065
     Dates: start: 19990101
  14. BETNEVAL [Concomitant]
     Indication: SKIN LESION
     Route: 065
     Dates: start: 20120321, end: 20120418
  15. FORLAX (AUSTRIA) [Concomitant]
     Indication: CONSTIPATION
     Route: 065
     Dates: start: 20120321, end: 20120614
  16. CETIRIZINE [Concomitant]
     Indication: HYPERSENSITIVITY
     Route: 065
     Dates: start: 20120321, end: 20120327
  17. FRAGMINE [Concomitant]
     Dosage: 18000 UI per day
     Route: 065
     Dates: start: 20120327, end: 20120418
  18. ZOPICLONE [Concomitant]
     Indication: INSOMNIA
     Route: 065
     Dates: start: 20120419, end: 20120519
  19. LASILIX [Concomitant]
     Indication: OEDEMA
     Route: 065
     Dates: start: 20120419, end: 20120619
  20. DIFFU K [Concomitant]
     Indication: HYPOKALAEMIA
     Route: 065
     Dates: start: 20120419, end: 20120619
  21. LOVENOX [Concomitant]
     Dosage: 1000 UI
     Route: 065
     Dates: start: 20120419
  22. MICROLAX (AUSTRALIA) [Concomitant]
     Indication: CONSTIPATION
     Route: 065
     Dates: start: 20120518, end: 20120614

REACTIONS (3)
  - Drug reaction with eosinophilia and systemic symptoms [Not Recovered/Not Resolved]
  - Skin toxicity [Not Recovered/Not Resolved]
  - Drug reaction with eosinophilia and systemic symptoms [Not Recovered/Not Resolved]
